FAERS Safety Report 20004472 (Version 2)
Quarter: 2022Q1

REPORT INFORMATION
  Report Type: Spontaneous
  Country: NO (occurrence: NO)
  Receive Date: 20211027
  Receipt Date: 20220127
  Transmission Date: 20220424
  Serious: Yes (Life-Threatening, Hospitalization, Other)
  Sender: FDA-Public Use
  Company Number: NO-BRISTOL-MYERS SQUIBB COMPANY-BMS-2021-111507

PATIENT
  Age: 70 Year
  Sex: Female

DRUGS (4)
  1. NIVOLUMAB [Suspect]
     Active Substance: NIVOLUMAB
     Indication: Nodular melanoma
     Dosage: UNAVAILABLE
     Route: 065
     Dates: start: 20201218
  2. IPILIMUMAB [Suspect]
     Active Substance: IPILIMUMAB
     Indication: Nodular melanoma
     Dosage: UNK
     Route: 065
     Dates: start: 20201218
  3. ATACAND [Concomitant]
     Active Substance: CANDESARTAN CILEXETIL
     Indication: Product used for unknown indication
     Dosage: UNK
     Route: 065
  4. SIMVASTATIN [Concomitant]
     Active Substance: SIMVASTATIN
     Indication: Product used for unknown indication
     Dosage: UNK
     Route: 065

REACTIONS (20)
  - Multiple organ dysfunction syndrome [Unknown]
  - Pleural effusion [Unknown]
  - Bone marrow failure [Unknown]
  - Pneumonia [Unknown]
  - Hyponatraemia [Unknown]
  - Immune-mediated enterocolitis [Unknown]
  - Vomiting [Unknown]
  - Diarrhoea [Unknown]
  - Nausea [Unknown]
  - Blood lactate dehydrogenase increased [Unknown]
  - Frostbite [Unknown]
  - Pseudomonas test positive [Unknown]
  - Atrial fibrillation [Unknown]
  - Aspartate aminotransferase increased [Unknown]
  - Alanine aminotransferase increased [Unknown]
  - Oedema [Unknown]
  - Contusion [Unknown]
  - Weight decreased [Unknown]
  - Fall [Unknown]
  - Rash maculo-papular [Recovering/Resolving]

NARRATIVE: CASE EVENT DATE: 20210304
